FAERS Safety Report 7988762 (Version 2)
Quarter: 2012Q4

REPORT INFORMATION
  Report Type: 
  Country: CA (occurrence: CA)
  Receive Date: 20110613
  Receipt Date: 20121031
  Transmission Date: 20130627
  Serious: Yes (Other)
  Sender: FDA-Public Use
  Company Number: PHMT2006CA00549

PATIENT
  Sex: Male

DRUGS (4)
  1. SANDOSTATIN LAR [Suspect]
     Indication: ACROMEGALY
     Dosage: 10 mg every four weeks
     Dates: start: 20051220
  2. SANDOSTATIN LAR [Suspect]
     Dosage: 20 mg, every 4 weeks
  3. SANDOSTATIN [Suspect]
     Indication: ACROMEGALY
     Dosage: 100 ug, TID
     Route: 058
  4. SYNTHROID [Concomitant]

REACTIONS (5)
  - Goitre [Unknown]
  - Thyroid cancer [Unknown]
  - Back injury [Recovering/Resolving]
  - Hyperglycaemia [Unknown]
  - Asthenia [Unknown]
